FAERS Safety Report 7592364-5 (Version None)
Quarter: 2011Q3

REPORT INFORMATION
  Report Type: 
  Country: None (occurrence: None)
  Receive Date: 20110705
  Receipt Date: 20110705
  Transmission Date: 20111222
  Serious: Yes (Hospitalization, Other)
  Sender: FDA-Public Use
  Company Number: None

PATIENT
  Age: 63 Year
  Sex: Female
  Weight: 84.8226 kg

DRUGS (2)
  1. ALVESCO [Suspect]
     Indication: ASTHMA
     Dosage: TWO PUFFS 2X'S A DAY PO
     Route: 048
     Dates: start: 20110630, end: 20110702
  2. ALVESCO [Suspect]
     Indication: ASTHMA
     Dosage: TWO PUFFS 2X'S A DAY PO
     Route: 048
     Dates: start: 20110618, end: 20110619

REACTIONS (4)
  - CHEST PAIN [None]
  - BLOOD PRESSURE INCREASED [None]
  - DRY MOUTH [None]
  - ORAL DISORDER [None]
